FAERS Safety Report 8229327-2 (Version None)
Quarter: 2012Q1

REPORT INFORMATION
  Report Type: 
  Country: None (occurrence: None)
  Receive Date: 20120322
  Receipt Date: 20120319
  Transmission Date: 20120608
  Serious: Yes (Other)
  Sender: FDA-Public Use
  Company Number: US-PFIZER INC-2012051929

PATIENT
  Sex: Female
  Weight: 109 kg

DRUGS (9)
  1. LYRICA [Suspect]
     Indication: NERVE INJURY
     Dosage: 150 MG, 1X/DAY
     Route: 048
     Dates: start: 20101101
  2. LYRICA [Suspect]
     Indication: POSTOPERATIVE CARE
     Dosage: 75 MG, 1X/DAY
     Route: 048
     Dates: start: 20101101, end: 20101101
  3. LISINOPRIL [Concomitant]
     Indication: HYPERTENSION
     Dosage: 10 MG, 1X/DAY
  4. HYDROCHLOROTHIAZIDE [Concomitant]
     Indication: INNER EAR DISORDER
     Dosage: 25 MG, 1X/DAY
  5. LYRICA [Suspect]
     Dosage: 150 MG, 3X/DAY
     Route: 048
  6. TYLENOL [Concomitant]
     Indication: HERPES ZOSTER
     Dosage: UNK
  7. LYRICA [Suspect]
     Indication: NEUROPATHY PERIPHERAL
     Dosage: 150 MG, 2X/DAY
     Route: 048
  8. ALLEGRA [Concomitant]
     Dosage: 180 MG, 1X/DAY, PRN
  9. CAFFEINE [Concomitant]
     Indication: HERPES ZOSTER
     Dosage: UNK

REACTIONS (2)
  - HAEMORRHAGE SUBCUTANEOUS [None]
  - PETECHIAE [None]
